FAERS Safety Report 10628460 (Version 1)
Quarter: 2014Q4

REPORT INFORMATION
  Report Type: Spontaneous
  Country: US (occurrence: US)
  Receive Date: 20141205
  Receipt Date: 20141205
  Transmission Date: 20150529
  Serious: No
  Sender: FDA-Public Use
  Company Number: US-BRISTOL-MYERS SQUIBB COMPANY-21218482

PATIENT
  Age: 59 Year
  Sex: Male

DRUGS (3)
  1. TADALAFIL [Concomitant]
     Active Substance: TADALAFIL
  2. FOLIC ACID. [Concomitant]
     Active Substance: FOLIC ACID
  3. COUMADIN [Suspect]
     Active Substance: WARFARIN SODIUM
     Indication: PROTEIN S DEFICIENCY
     Dosage: 7.5MG,4 DAYS A WEEK?5MG,3 DAYS A WEEK

REACTIONS (2)
  - Weight fluctuation [Unknown]
  - International normalised ratio fluctuation [Unknown]
